FAERS Safety Report 10510920 (Version 1)
Quarter: 2014Q3

REPORT INFORMATION
  Report Type: Spontaneous
  Country: US (occurrence: None)
  Receive Date: 20140926
  Receipt Date: 20140926
  Transmission Date: 20150326
  Serious: No
  Sender: FDA-Public Use
  Company Number: 1000069681

PATIENT
  Sex: Female

DRUGS (3)
  1. LINZESS [Suspect]
     Active Substance: LINACLOTIDE
     Route: 048
     Dates: start: 201407, end: 201407
  2. ANTIBIOTICS(NOS) ANTIBIOTICS NOS)(ANTIBIOTICS)NOS) [Concomitant]
  3. VARIETY OF MEDICATIONS(NOS) [Concomitant]

REACTIONS (5)
  - Asthenia [None]
  - Abdominal distension [None]
  - Diarrhoea [None]
  - Gait disturbance [None]
  - Vomiting [None]

NARRATIVE: CASE EVENT DATE: 201407
